FAERS Safety Report 8548247-7 (Version None)
Quarter: 2012Q3

REPORT INFORMATION
  Report Type: 
  Country: None (occurrence: None)
  Receive Date: 20120730
  Receipt Date: 20120723
  Transmission Date: 20120928
  Serious: Yes (Hospitalization, Other)
  Sender: FDA-Public Use
  Company Number: US-009507513-1207USA010587

PATIENT

DRUGS (20)
  1. PROSCAR [Suspect]
     Dosage: 5 MG, UNK
     Route: 048
  2. LEVOTHYROXINE SODIUM [Suspect]
     Dosage: 88 MICROGRAM, UNK
  3. TRAVOPROST [Suspect]
  4. FUROSEMIDE [Suspect]
     Dosage: 40 MG, UNK
  5. HYDRALAZINE HCL [Suspect]
     Dosage: 100 MG  IN DIVIDED DOSES
  6. LACTULOSE [Suspect]
     Dosage: 20 G, PRN
  7. METOPROLOL TARTRATE [Suspect]
     Dosage: 200 MG, UNK
  8. ZOCOR [Suspect]
     Dosage: 20 MG, QD, FOR 1.5 YEARS
     Route: 048
  9. PRINIVIL [Suspect]
     Dosage: 20 MG, UNK
  10. SODIUM POLYSTYRENE SULFONATE [Suspect]
     Dosage: 30 G, UNK
  11. ZOCOR [Suspect]
     Dosage: 40MG, DAILY FOR 9 MONTHS
  12. ASPIRIN [Suspect]
     Dosage: 81 MG, UNK
  13. ERGOCALCIFEROL [Suspect]
     Dosage: 50000 UNK, TWO TIMES A DAY
  14. MEPERIDINE HYDROCHLORIDE [Suspect]
  15. MIDAZOLAM [Suspect]
  16. AMLODIPINE [Suspect]
     Dosage: 10 MG, UNK
  17. GEMFIBROZIL [Suspect]
     Dosage: 600 MG, BID
  18. FERROUS SULFATE TAB [Suspect]
     Dosage: 325 MG, UNK
  19. LANTUS [Suspect]
     Dosage: 70 U, UNK
  20. DOXAZOSIN MESYLATE [Suspect]
     Dosage: 8 MG, UNK

REACTIONS (11)
  - IRON DEFICIENCY ANAEMIA [None]
  - RESPIRATORY RATE INCREASED [None]
  - EROSIVE DUODENITIS [None]
  - RENAL IMPAIRMENT [None]
  - TEARFULNESS [None]
  - BLOOD PRESSURE SYSTOLIC INCREASED [None]
  - ILEUS [None]
  - GAIT DISTURBANCE [None]
  - ANXIETY [None]
  - RHABDOMYOLYSIS [None]
  - MYOPATHY [None]
